FAERS Safety Report 24614556 (Version 1)
Quarter: 2024Q4

REPORT INFORMATION
  Report Type: Spontaneous
  Country: US (occurrence: US)
  Receive Date: 20241113
  Receipt Date: 20241113
  Transmission Date: 20250115
  Serious: No
  Sender: BRISTOL-MYERS SQUIBB COMPANY
  Company Number: US-BRISTOL-MYERS SQUIBB COMPANY-2024-177569

PATIENT
  Age: 57 Year
  Sex: Female
  Weight: 62.9 kg

DRUGS (2)
  1. NULOJIX [Suspect]
     Active Substance: BELATACEPT
     Indication: Renal transplant
     Dates: start: 2020
  2. NULOJIX [Suspect]
     Active Substance: BELATACEPT

REACTIONS (1)
  - Weight fluctuation [Unknown]
